FAERS Safety Report 5327629-0 (Version None)
Quarter: 2007Q2

REPORT INFORMATION
  Report Type: 
  Country: None (occurrence: None)
  Receive Date: 20070517
  Receipt Date: 20070515
  Transmission Date: 20071010
  Serious: Yes (Hospitalization)
  Sender: FDA-Public Use
  Company Number: A0641200A

PATIENT
  Age: 28 Year
  Sex: Female
  Weight: 90.9 kg

DRUGS (1)
  1. WELLBUTRIN XL [Suspect]
     Indication: DRUG USE FOR UNKNOWN INDICATION
     Dosage: 150MG TWICE PER DAY
     Route: 048
     Dates: start: 20070122, end: 20070206

REACTIONS (4)
  - GRAND MAL CONVULSION [None]
  - MUSCULOSKELETAL STIFFNESS [None]
  - PAIN [None]
  - SKELETAL INJURY [None]
